FAERS Safety Report 8852368 (Version 2)
Quarter: 2012Q4

REPORT INFORMATION
  Report Type: Spontaneous
  Country: IT (occurrence: None)
  Receive Date: 20121017
  Receipt Date: 20121031
  Transmission Date: 20130627
  Serious: Yes (Hospitalization)
  Sender: FDA-Public Use
  Company Number: IT-HORIZON-PRE-0081-2012

PATIENT
  Age: 88 Year
  Sex: Female

DRUGS (4)
  1. LODOTRA [Suspect]
     Indication: RHEUMATOID ARTHRITIS
     Dosage: 2 mg milligram(s)
sep. dosages/interval 1 in 1 days oral
     Route: 048
     Dates: start: 20120101, end: 20120912
  2. ACETYLSALICYLIC ACID [Concomitant]
     Dosage: 100 mg milligram(s)
sep. dosages/interval 1 in 1 days oral
     Dates: start: 20120101, end: 20120912
  3. LANSOPRAZOLE [Concomitant]
  4. FOSIPRES [Concomitant]

REACTIONS (2)
  - Rectal haemorrhage [None]
  - Vomiting [None]
